FAERS Safety Report 25722124 (Version 1)
Quarter: 2025Q3

REPORT INFORMATION
  Report Type: Spontaneous
  Country: US (occurrence: None)
  Receive Date: 20250824
  Receipt Date: 20250824
  Transmission Date: 20251020
  Serious: Yes (Hospitalization)
  Sender: FDA-CTU
  Company Number: None

PATIENT
  Age: 82 Year
  Sex: Male
  Weight: 87.75 kg

DRUGS (21)
  1. COSMETICS [Suspect]
     Active Substance: COSMETICS
     Indication: Hair growth rate abnormal
     Dosage: OTHER QUANTITY : 2 CAPSULE(S);?FREQUENCY : DAILY;?
     Route: 048
     Dates: start: 20250821, end: 20250821
  2. PROPRANOLOL HYDROCHLORIDE [Suspect]
     Active Substance: PROPRANOLOL HYDROCHLORIDE
     Indication: Hair growth rate abnormal
     Dosage: FREQUENCY : DAILY;?
     Route: 048
     Dates: start: 20250821, end: 20250821
  3. DEVICE [Concomitant]
     Active Substance: DEVICE
  4. AMLODIPINE [Concomitant]
     Active Substance: AMLODIPINE BESYLATE
  5. PROPRANOLOL [Concomitant]
     Active Substance: PROPRANOLOL HYDROCHLORIDE
  6. IRBESARTAN [Concomitant]
     Active Substance: IRBESARTAN
  7. ARMOUR THYROID [Concomitant]
     Active Substance: THYROID, PORCINE
  8. TAMSULOSIN [Concomitant]
     Active Substance: TAMSULOSIN
  9. POTASSIUM CITRATE [Concomitant]
     Active Substance: POTASSIUM CITRATE
  10. FINASTERIDE [Concomitant]
     Active Substance: FINASTERIDE
  11. ATORVASTATIN [Concomitant]
     Active Substance: ATORVASTATIN
  12. Eiiquis [Concomitant]
  13. FEBUXOSTAT [Concomitant]
     Active Substance: FEBUXOSTAT
  14. TIMOLOL [Concomitant]
     Active Substance: TIMOLOL
  15. Compounded testosterone cream. [Concomitant]
  16. VITAMIN C [Concomitant]
     Active Substance: ASCORBIC ACID
  17. VITAMIN B12 [Concomitant]
     Active Substance: CYANOCOBALAMIN
  18. VITAMIN D3 [Concomitant]
     Active Substance: CHOLECALCIFEROL
  19. FISH OIL [Concomitant]
     Active Substance: FISH OIL
  20. COENZYME Q10 [Concomitant]
     Active Substance: DIETARY SUPPLEMENT\UBIDECARENONE
  21. ZINC [Concomitant]
     Active Substance: ZINC

REACTIONS (6)
  - Heart rate increased [None]
  - Extrasystoles [None]
  - Hypersomnia [None]
  - Atrial fibrillation [None]
  - Arrhythmia [None]
  - Product formulation issue [None]

NARRATIVE: CASE EVENT DATE: 20250821
